FAERS Safety Report 4498761-9 (Version None)
Quarter: 2004Q4

REPORT INFORMATION
  Report Type: 
  Country: None (occurrence: None)
  Receive Date: 20041108
  Receipt Date: 20041022
  Transmission Date: 20050328
  Serious: Yes (Disabling)
  Sender: FDA-Public Use
  Company Number: 002#4#2004-00177

PATIENT
  Age: 7 Week
  Sex: Female

DRUGS (1)
  1. REGLAN [Suspect]

REACTIONS (12)
  - CONVULSION [None]
  - DEVELOPMENTAL DELAY [None]
  - DIARRHOEA [None]
  - DYSKINESIA [None]
  - DYSURIA [None]
  - FLOPPY INFANT [None]
  - HYPERSOMNIA [None]
  - HYPOTONIA [None]
  - PETIT MAL EPILEPSY [None]
  - POSTURE ABNORMAL [None]
  - PUPILS UNEQUAL [None]
  - SPEECH DISORDER [None]
